FAERS Safety Report 8556435-9 (Version None)
Quarter: 2012Q2

REPORT INFORMATION
  Report Type: 
  Country: None (occurrence: None)
  Receive Date: 20120418
  Receipt Date: 20100301
  Transmission Date: 20120825
  Serious: Yes (Other)
  Sender: FDA-Public Use
  Company Number: PHEH2009US15846

PATIENT
  Age: 30 Year
  Sex: Male

DRUGS (3)
  1. ELIDEL [Suspect]
     Indication: ECZEMA
     Dosage: BID, TOPICAL
     Route: 061
     Dates: start: 20091105, end: 20091107
  2. ALLEGRA (FEXOFENADINE HYDROCHLROIDE) [Concomitant]
  3. FLONASE [Concomitant]

REACTIONS (1)
  - APPLICATION SITE PAIN [None]
